FAERS Safety Report 7179109-8 (Version None)
Quarter: 2010Q4

REPORT INFORMATION
  Report Type: 
  Country: None (occurrence: None)
  Receive Date: 20101221
  Receipt Date: 20101208
  Transmission Date: 20110411
  Serious: No
  Sender: FDA-Public Use
  Company Number: US-PFIZER INC-2010169037

PATIENT
  Sex: Male

DRUGS (1)
  1. GEODON [Suspect]

REACTIONS (3)
  - AGGRESSION [None]
  - ENURESIS [None]
  - ERECTILE DYSFUNCTION [None]
